FAERS Safety Report 8366446-4 (Version None)
Quarter: 2012Q1

REPORT INFORMATION
  Report Type: 
  Country: None (occurrence: None)
  Receive Date: 20120323
  Receipt Date: 20110822
  Transmission Date: 20120608
  Serious: Yes (Disabling)
  Sender: FDA-Public Use
  Company Number: 163-21880-11041736

PATIENT
  Sex: Female

DRUGS (6)
  1. REVLIMID [Suspect]
     Indication: 5Q MINUS SYNDROME
     Dosage: 5MG-10MG,DAILY, PO
     Route: 048
     Dates: start: 20101201, end: 20110401
  2. LISINOPRIL [Concomitant]
  3. METOPROLOL TARTRATE [Concomitant]
  4. SIMVASTATIN [Concomitant]
  5. REVLIMID [Suspect]
  6. AMLODIPINE [Concomitant]

REACTIONS (2)
  - RASH MACULAR [None]
  - PRURITUS [None]
